FAERS Safety Report 12765315 (Version 1)
Quarter: 2016Q3

REPORT INFORMATION
  Report Type: Spontaneous
  Country: US (occurrence: US)
  Receive Date: 20160921
  Receipt Date: 20160921
  Transmission Date: 20161109
  Serious: No
  Sender: FDA-Public Use
  Company Number: US-PFIZER INC-2016433739

PATIENT
  Age: 35 Year
  Sex: Female
  Weight: 97.52 kg

DRUGS (5)
  1. GABAPENTIN. [Suspect]
     Active Substance: GABAPENTIN
     Indication: PAIN
     Dosage: 300 MG, 2X/DAY (300MG CAPSULE ONE IN THE MORNING AND ONE AT NIGHT)
     Dates: start: 2016, end: 2016
  2. HYDROCODEINE [Suspect]
     Active Substance: DIHYDROCODEINE PHOSPHATE
     Indication: BACK PAIN
     Dosage: 4 DF, DAILY (10/325, 4 PILLS A DAY)
     Route: 048
  3. HYDROCODEINE [Suspect]
     Active Substance: DIHYDROCODEINE PHOSPHATE
     Indication: PAIN IN EXTREMITY
  4. TRAMADOL. [Suspect]
     Active Substance: TRAMADOL
     Indication: PAIN
     Dosage: 50 MG, UNK
  5. HYDROCODEINE [Suspect]
     Active Substance: DIHYDROCODEINE PHOSPHATE
     Indication: ARTHRALGIA

REACTIONS (1)
  - Drug ineffective [Unknown]
